FAERS Safety Report 5219093-7 (Version None)
Quarter: 2007Q1

REPORT INFORMATION
  Report Type: 
  Country: None (occurrence: None)
  Receive Date: 20070124
  Receipt Date: 20070124
  Transmission Date: 20070707
  Serious: Yes (Other)
  Sender: FDA-Public Use
  Company Number: None

PATIENT
  Age: 69 Year
  Sex: Female
  Weight: 70.3075 kg

DRUGS (1)
  1. CITALOPRAM HYDROBROMIDE [Suspect]
     Dosage: 40MG  DAILY  PO
     Route: 048
     Dates: start: 20041101, end: 20050101

REACTIONS (3)
  - DEPRESSION [None]
  - DISEASE RECURRENCE [None]
  - DRUG TOLERANCE DECREASED [None]
